FAERS Safety Report 6688036-1 (Version None)
Quarter: 2010Q2

REPORT INFORMATION
  Report Type: 
  Country: None (occurrence: None)
  Receive Date: 20100420
  Receipt Date: 20100408
  Transmission Date: 20101027
  Serious: Yes (Other)
  Sender: FDA-Public Use
  Company Number: PHHY2009JP59351

PATIENT
  Sex: Female

DRUGS (13)
  1. ICL670A ICL+DISTAB [Suspect]
     Indication: THALASSAEMIA BETA
     Dosage: 500 MG DAILY
     Route: 048
     Dates: start: 20080806, end: 20081014
  2. ICL670A ICL+DISTAB [Suspect]
     Indication: IRON OVERLOAD
     Dosage: 1000 MG DAILY
     Route: 048
     Dates: start: 20081015, end: 20081104
  3. ICL670A ICL+DISTAB [Suspect]
     Dosage: 500 MG DAILY
     Route: 048
     Dates: start: 20081105, end: 20081216
  4. ICL670A ICL+DISTAB [Suspect]
     Dosage: 1000 MG DAILY
     Route: 048
     Dates: start: 20081217, end: 20090106
  5. ICL670A ICL+DISTAB [Suspect]
     Dosage: 500 MG DAILY
     Route: 048
     Dates: start: 20090107, end: 20090218
  6. ICL670A ICL+DISTAB [Suspect]
     Dosage: 1000 MG DAILY
     Route: 048
     Dates: start: 20090219, end: 20090617
  7. ICL670A ICL+DISTAB [Suspect]
     Dosage: 1250 MG DAILY
     Route: 048
     Dates: start: 20090618, end: 20090715
  8. ICL670A ICL+DISTAB [Suspect]
     Dosage: 1000 MG DAILY
     Route: 048
     Dates: start: 20090716, end: 20090805
  9. ICL670A ICL+DISTAB [Suspect]
     Dosage: 1250 MG DAILY
     Route: 048
     Dates: start: 20090806, end: 20090806
  10. ALOSITOL [Suspect]
     Dosage: 100 MG DAILY
     Route: 048
     Dates: start: 20080806, end: 20080915
  11. ALOSITOL [Suspect]
     Dosage: 200 MG DAILY
     Route: 048
     Dates: start: 20080916
  12. DESFERAL [Concomitant]
     Indication: IRON OVERLOAD
     Dosage: 71 MG, UNK
     Route: 030
     Dates: start: 20070228, end: 20070716
  13. IRRADIATED RED CELLS CONCENTRATES - LEUKOCYTES REDUCED (RCC-LR) [Concomitant]
     Dosage: 2 UNITS EVERY 4 WEEKS
     Dates: start: 20080903, end: 20090806

REACTIONS (2)
  - CARDIAC FAILURE [None]
  - HEPATIC FUNCTION ABNORMAL [None]
